FAERS Safety Report 6674407-6 (Version None)
Quarter: 2010Q1

REPORT INFORMATION
  Report Type: 
  Country: None (occurrence: None)
  Receive Date: 20100329
  Receipt Date: 20090602
  Transmission Date: 20100710
  Serious: Yes (Other)
  Sender: FDA-Public Use
  Company Number: 2009203907

PATIENT
  Age: 45 Year
  Sex: Male

DRUGS (4)
  1. GEODON [Suspect]
     Dosage: 80 MG, 1X/DAY, ORAL
     Route: 048
  2. EFFEXOR XR [Concomitant]
  3. TEMAZEPAM [Concomitant]
  4. LISINOPRIL [Concomitant]

REACTIONS (1)
  - TARDIVE DYSKINESIA [None]
